FAERS Safety Report 5201387-2 (Version None)
Quarter: 2007Q1

REPORT INFORMATION
  Report Type: 
  Country: None (occurrence: None)
  Receive Date: 20070108
  Receipt Date: 20061227
  Transmission Date: 20070707
  Serious: Yes (Hospitalization, Other)
  Sender: FDA-Public Use
  Company Number: JP-PFIZER INC-2006153935

PATIENT
  Sex: Female
  Weight: 53 kg

DRUGS (6)
  1. SOLU-MEDROL [Suspect]
     Indication: PROPHYLAXIS
     Dosage: DAILY DOSE:250MG
     Route: 042
     Dates: start: 20061213, end: 20061213
  2. ADONA [Suspect]
     Indication: COAGULOPATHY
     Dosage: DAILY DOSE:25MG
     Route: 042
     Dates: start: 20061209, end: 20061213
  3. RHYTHMY [Concomitant]
     Route: 048
     Dates: start: 20061209, end: 20061211
  4. VEEN-F [Concomitant]
     Route: 042
     Dates: start: 20061209, end: 20061213
  5. TRANSAMIN [Concomitant]
     Route: 042
     Dates: start: 20061209, end: 20061213
  6. HARTMANN [Concomitant]
     Route: 042
     Dates: start: 20061209, end: 20061213

REACTIONS (4)
  - DYSPNOEA [None]
  - LARYNGEAL OEDEMA [None]
  - SHOCK [None]
  - URTICARIA [None]
